FAERS Safety Report 7049351-5 (Version None)
Quarter: 2010Q4

REPORT INFORMATION
  Report Type: 
  Country: None (occurrence: None)
  Receive Date: 20101018
  Receipt Date: 20101011
  Transmission Date: 20110411
  Serious: Yes (Hospitalization)
  Sender: FDA-Public Use
  Company Number: DE-ROCHE-733594

PATIENT
  Sex: Female
  Weight: 165 kg

DRUGS (2)
  1. RIBAVIRIN [Suspect]
     Route: 048
     Dates: start: 20100331, end: 20101008
  2. PEGINTERFERON ALFA-2A [Suspect]
     Route: 058
     Dates: start: 20100331, end: 20101008

REACTIONS (1)
  - LEUKOPENIA [None]
